FAERS Safety Report 9167771 (Version 1)
Quarter: 2013Q1

REPORT INFORMATION
  Report Type: Spontaneous
  Country: US (occurrence: US)
  Receive Date: 20130318
  Receipt Date: 20130318
  Transmission Date: 20140127
  Serious: No
  Sender: FDA-Public Use
  Company Number: US-PFIZER INC-2013089040

PATIENT
  Age: 53 Year
  Sex: Female
  Weight: 88.44 kg

DRUGS (1)
  1. EFFEXOR XR [Suspect]
     Indication: MAJOR DEPRESSION
     Dosage: 150 MG DAILY
     Route: 048
     Dates: start: 201205

REACTIONS (1)
  - Malaise [Recovered/Resolved]
